FAERS Safety Report 5945267-3 (Version None)
Quarter: 2008Q4

REPORT INFORMATION
  Report Type: 
  Country: None (occurrence: None)
  Receive Date: 20081107
  Receipt Date: 20081027
  Transmission Date: 20090506
  Serious: Yes (Life-Threatening)
  Sender: FDA-Public Use
  Company Number: JP-ELI_LILLY_AND_COMPANY-JP200809001686

PATIENT
  Sex: Female
  Weight: 36.2 kg

DRUGS (7)
  1. ZYPREXA [Suspect]
     Indication: DEMENTIA
     Dosage: 10 MG, DAILY (1/D)
     Route: 048
     Dates: start: 20080621, end: 20080626
  2. ZYPREXA [Suspect]
     Dosage: 10 MG, DAILY (1/D)
     Route: 048
     Dates: start: 20080627, end: 20080827
  3. ZYPREXA [Suspect]
     Dosage: 10 MG, DAILY (1/D)
     Route: 048
     Dates: start: 20080828, end: 20080828
  4. DEPAKENE [Concomitant]
     Dosage: 200 MG, DAILY (1/D)
     Route: 048
     Dates: start: 20080704, end: 20080828
  5. SILECE [Concomitant]
     Dosage: 2 MG, DAILY (1/D)
     Route: 048
     Dates: start: 20080319, end: 20080828
  6. MAGMITT [Concomitant]
     Dosage: 1980 MG, DAILY (1/D)
     Route: 048
     Dates: start: 20080411, end: 20080828
  7. YOKUKAN-SAN [Concomitant]
     Dosage: 5 G, DAILY (1/D)
     Route: 048
     Dates: start: 20080703, end: 20080828

REACTIONS (3)
  - DEPRESSED LEVEL OF CONSCIOUSNESS [None]
  - HEPATIC FUNCTION ABNORMAL [None]
  - METABOLIC DISORDER [None]
